FAERS Safety Report 12261380 (Version 1)
Quarter: 2016Q2

REPORT INFORMATION
  Report Type: Spontaneous
  Country: US (occurrence: US)
  Receive Date: 20160412
  Receipt Date: 20160412
  Transmission Date: 20160815
  Serious: Yes (Death, Other)
  Sender: FDA-Public Use
  Company Number: US-TAKEDA-TPA2012A04187

PATIENT

DRUGS (9)
  1. METFORMIN [Concomitant]
     Active Substance: METFORMIN HYDROCHLORIDE
     Dosage: UNK
     Dates: start: 20010101, end: 20120103
  2. ACTOS [Suspect]
     Active Substance: PIOGLITAZONE HYDROCHLORIDE
     Indication: TYPE 2 DIABETES MELLITUS
     Dosage: 15 MG, UNK
     Route: 048
     Dates: start: 1992, end: 20090114
  3. LISPRO INSULIN [Concomitant]
     Active Substance: INSULIN LISPRO
     Dosage: 35 IU, UNK
     Dates: start: 2000, end: 2011
  4. GLUCOTROL [Concomitant]
     Active Substance: GLIPIZIDE
     Dosage: UNK
     Dates: start: 20050101, end: 20110101
  5. INSULIN GLARGINE [Concomitant]
     Active Substance: INSULIN GLARGINE
     Dosage: 35 MG, UNK
     Dates: start: 20020101
  6. MICRONASE [Concomitant]
     Active Substance: GLYBURIDE
     Dosage: 5 MG, UNK
     Dates: start: 20000101, end: 20020101
  7. AVANDIA [Concomitant]
     Active Substance: ROSIGLITAZONE MALEATE
     Dosage: UNK
     Dates: start: 1998, end: 2000
  8. GLUCOPHAGE [Concomitant]
     Active Substance: METFORMIN HYDROCHLORIDE
     Dosage: 5 MG, UNK
     Dates: start: 20000101, end: 20110101
  9. BYETTA [Concomitant]
     Active Substance: EXENATIDE
     Dosage: 10 MG, UNK
     Dates: start: 20040101, end: 20110101

REACTIONS (2)
  - Death [Fatal]
  - Bladder cancer [Unknown]

NARRATIVE: CASE EVENT DATE: 20100928
